FAERS Safety Report 7389376-3 (Version None)
Quarter: 2011Q2

REPORT INFORMATION
  Report Type: 
  Country: None (occurrence: None)
  Receive Date: 20110401
  Receipt Date: 20110328
  Transmission Date: 20111010
  Serious: Yes (Hospitalization)
  Sender: FDA-Public Use
  Company Number: B0708861A

PATIENT
  Age: 81 Year
  Sex: Female

DRUGS (3)
  1. STABLON [Suspect]
     Indication: DEPRESSION
     Route: 048
     Dates: end: 20110128
  2. ROCEPHIN [Suspect]
     Indication: INFECTION
     Route: 042
     Dates: start: 20110126, end: 20110128
  3. AUGMENTIN [Suspect]
     Indication: INFECTION
     Route: 048
     Dates: start: 20110125, end: 20110126

REACTIONS (1)
  - PANCYTOPENIA [None]
